FAERS Safety Report 5760902-0 (Version None)
Quarter: 2008Q2

REPORT INFORMATION
  Report Type: 
  Country: None (occurrence: None)
  Receive Date: 20080606
  Receipt Date: 20080401
  Transmission Date: 20081010
  Serious: No
  Sender: FDA-Public Use
  Company Number: US-ASTRAZENECA-2008UW06617

PATIENT
  Sex: Female

DRUGS (3)
  1. PRILOSEC [Suspect]
     Indication: GASTROOESOPHAGEAL REFLUX DISEASE
     Dates: start: 19950101
  2. NEXIUM [Concomitant]
     Route: 048
  3. PRILOSEC OTC [Concomitant]
     Route: 048

REACTIONS (7)
  - DIZZINESS [None]
  - DYSPEPSIA [None]
  - GASTRIC DISORDER [None]
  - HEADACHE [None]
  - ILL-DEFINED DISORDER [None]
  - MUSCULOSKELETAL PAIN [None]
  - NECK PAIN [None]
